FAERS Safety Report 22771748 (Version 4)
Quarter: 2024Q3

REPORT INFORMATION
  Report Type: Report from Study
  Country: CA (occurrence: CA)
  Receive Date: 20230801
  Receipt Date: 20240730
  Transmission Date: 20241016
  Serious: Yes (Other)
  Sender: BAYER
  Company Number: CA-BAYER-2023A105978

PATIENT
  Age: 46 Year
  Sex: Female

DRUGS (1)
  1. MIRENA [Suspect]
     Active Substance: LEVONORGESTREL
     Dosage: 20?G/DAY
     Route: 015
     Dates: start: 20230830, end: 20230830

REACTIONS (3)
  - Device breakage [None]
  - Complication of device insertion [None]
  - Genital haemorrhage [None]

NARRATIVE: CASE EVENT DATE: 20230830
